FAERS Safety Report 10676686 (Version 2)
Quarter: 2014Q4

REPORT INFORMATION
  Report Type: Spontaneous
  Country: US (occurrence: US)
  Receive Date: 20141226
  Receipt Date: 20141226
  Transmission Date: 20150529
  Serious: Yes (Other)
  Sender: FDA-Public Use
  Company Number: US-UCBSA-2014021436

PATIENT
  Age: 41 Year
  Sex: Female
  Weight: 68.2 kg

DRUGS (2)
  1. VIMPAT [Suspect]
     Active Substance: LACOSAMIDE
     Indication: SEIZURE
     Dosage: 25 MG, 2X/DAY (BID)
     Route: 048
     Dates: start: 201412, end: 201412
  2. DEPAKOTE [Concomitant]
     Active Substance: DIVALPROEX SODIUM
     Indication: SEIZURE
     Dosage: 500 MG, 3X/DAY (TID)
     Route: 048
     Dates: start: 20131029

REACTIONS (2)
  - Suicidal ideation [Recovered/Resolved]
  - Self injurious behaviour [Recovered/Resolved]

NARRATIVE: CASE EVENT DATE: 201412
